FAERS Safety Report 5268477-X (Version None)
Quarter: 2007Q1

REPORT INFORMATION
  Report Type: 
  Country: None (occurrence: None)
  Receive Date: 20070319
  Receipt Date: 20070305
  Transmission Date: 20070707
  Serious: Yes (Other)
  Sender: FDA-Public Use
  Company Number: DE-ELI_LILLY_AND_COMPANY-DE200703003208

PATIENT
  Age: 21 Year
  Sex: Female

DRUGS (2)
  1. OLANZAPINE [Suspect]
     Indication: SCHIZOPHRENIA, PARANOID TYPE
     Dosage: 40 MG, UNK
  2. HALOPERIDOL [Concomitant]
     Indication: SCHIZOPHRENIA, PARANOID TYPE
     Dosage: 10 MG, UNK

REACTIONS (5)
  - ACCOMMODATION DISORDER [None]
  - CONSTIPATION [None]
  - METABOLIC SYNDROME [None]
  - PRESCRIBED OVERDOSE [None]
  - SEDATION [None]
